FAERS Safety Report 8516605-2 (Version None)
Quarter: 2012Q3

REPORT INFORMATION
  Report Type: 
  Country: None (occurrence: None)
  Receive Date: 20120718
  Receipt Date: 20120712
  Transmission Date: 20120928
  Serious: Yes (Other)
  Sender: FDA-Public Use
  Company Number: US-BAYER-2012-070677

PATIENT
  Age: 32 Year
  Sex: Female
  Weight: 68.934 kg

DRUGS (8)
  1. DROSPIRENONE AND ETHINYL ESTRADIOL [Suspect]
  2. DEXAMETHASONE [Concomitant]
     Route: 048
  3. ANTIVERT [Concomitant]
  4. ACYCLOVIR [Concomitant]
     Route: 048
  5. ANTIHISTAMINES [Concomitant]
  6. WELLBUTRIN XL [Concomitant]
     Dosage: 150 MG, DAILY
     Route: 048
  7. ALESSE [Concomitant]
  8. ASPIRIN [Concomitant]
     Dosage: 81 MG, DAILY
     Route: 048

REACTIONS (2)
  - DEEP VEIN THROMBOSIS [None]
  - BILIARY DYSKINESIA [None]
